FAERS Safety Report 10309571 (Version 1)
Quarter: 2014Q3

REPORT INFORMATION
  Report Type: Spontaneous
  Country: GR (occurrence: GR)
  Receive Date: 20140717
  Receipt Date: 20140717
  Transmission Date: 20150326
  Serious: Yes (Other)
  Sender: FDA-Public Use
  Company Number: GR-ROCHE-1433736

PATIENT

DRUGS (1)
  1. VEMURAFENIB [Suspect]
     Active Substance: VEMURAFENIB
     Indication: METASTATIC MALIGNANT MELANOMA
     Route: 065

REACTIONS (11)
  - Hyperkeratosis [Unknown]
  - Bursitis [Unknown]
  - Photosensitivity reaction [Unknown]
  - Hair texture abnormal [Unknown]
  - Dermatitis acneiform [Unknown]
  - Keratoacanthoma [Unknown]
  - Milia [Unknown]
  - Urticaria [Unknown]
  - Drug eruption [Unknown]
  - Alopecia [Unknown]
  - Rash papular [Unknown]
